FAERS Safety Report 4718396-X (Version None)
Quarter: 2005Q3

REPORT INFORMATION
  Report Type: 
  Country: None (occurrence: None)
  Receive Date: 20050720
  Receipt Date: 20050714
  Transmission Date: 20060218
  Serious: Yes (Hospitalization)
  Sender: FDA-Public Use
  Company Number: NO-MERCK-0507NOR00013

PATIENT
  Age: 54 Year
  Sex: Male

DRUGS (5)
  1. VIOXX [Suspect]
     Indication: SHOULDER PAIN
     Route: 065
     Dates: start: 20030911, end: 20030923
  2. INSULIN, ISOPHANE [Concomitant]
     Indication: DIABETES MELLITUS NON-INSULIN-DEPENDENT
     Route: 065
     Dates: start: 19970101
  3. AMLODIPINE BESYLATE [Concomitant]
     Indication: HYPERTENSION
     Route: 065
  4. TESTOSTERONE ENANTHATE [Concomitant]
     Indication: ERECTILE DYSFUNCTION
     Route: 065
  5. DIAZEPAM [Concomitant]
     Indication: DEPRESSION
     Route: 065

REACTIONS (1)
  - CEREBRAL INFARCTION [None]
